FAERS Safety Report 7522421-0 (Version None)
Quarter: 2011Q2

REPORT INFORMATION
  Report Type: 
  Country: None (occurrence: None)
  Receive Date: 20110525
  Receipt Date: 20110519
  Transmission Date: 20111010
  Serious: Yes (Death)
  Sender: FDA-Public Use
  Company Number: 2011040115

PATIENT
  Age: 57 Year
  Sex: Male

DRUGS (2)
  1. ONSOLIS [Suspect]
     Dosage: 200 MCG FILMS, TITRATED UP TO 4 FILMS PER DOSE (UP TO 4 TIMES PER DAY),BU
     Route: 002
     Dates: start: 20100120, end: 20100502
  2. FENTANYL-100 [Concomitant]

REACTIONS (2)
  - OESOPHAGEAL ADENOCARCINOMA METASTATIC [None]
  - DISEASE PROGRESSION [None]
